FAERS Safety Report 6381974-9 (Version None)
Quarter: 2009Q3

REPORT INFORMATION
  Report Type: 
  Country: None (occurrence: None)
  Receive Date: 20090925
  Receipt Date: 20090911
  Transmission Date: 20100115
  Serious: Yes (Hospitalization)
  Sender: FDA-Public Use
  Company Number: US-JNJFOC-20090904478

PATIENT
  Age: 77 Year
  Sex: Female

DRUGS (1)
  1. DACOGEN [Suspect]
     Indication: MYELODYSPLASTIC SYNDROME
     Dosage: CYCLE 1 INTRAVENOUS,   CYCLE 2
     Route: 042
     Dates: start: 20090701

REACTIONS (1)
  - PNEUMONIA [None]
